FAERS Safety Report 5358654-1 (Version None)
Quarter: 2007Q2

REPORT INFORMATION
  Report Type: 
  Country: None (occurrence: None)
  Receive Date: 20070615
  Receipt Date: 20070605
  Transmission Date: 20071010
  Serious: Yes (Other)
  Sender: FDA-Public Use
  Company Number: US-JNJFOC-20070601609

PATIENT
  Sex: Female

DRUGS (4)
  1. TOPAMAX [Suspect]
     Indication: MIGRAINE PROPHYLAXIS
     Route: 048
  2. IMITREX [Concomitant]
     Indication: MIGRAINE
  3. ZOMIG [Concomitant]
     Indication: MIGRAINE
  4. CORTISONE ACETATE [Concomitant]
     Indication: PRURITUS
     Route: 061

REACTIONS (7)
  - BASAL CELL CARCINOMA [None]
  - MIGRAINE [None]
  - NERVOUS SYSTEM DISORDER [None]
  - PAIN IN EXTREMITY [None]
  - PARAESTHESIA [None]
  - PRURITUS [None]
  - SKIN DISORDER [None]
